FAERS Safety Report 9163066 (Version 1)
Quarter: 2013Q1

REPORT INFORMATION
  Report Type: Spontaneous
  Country: ES (occurrence: ES)
  Receive Date: 20130314
  Receipt Date: 20130314
  Transmission Date: 20140127
  Serious: Yes (Hospitalization, Other)
  Sender: FDA-Public Use
  Company Number: ES-ELI_LILLY_AND_COMPANY-ES201303002453

PATIENT
  Age: 57 Year
  Sex: Female

DRUGS (9)
  1. FORSTEO [Suspect]
     Indication: OSTEOPOROSIS
     Dosage: 20 UG, QD
     Route: 058
     Dates: end: 20090216
  2. CALCIUM [Concomitant]
     Indication: OSTEOPOROSIS
     Dosage: UNK
  3. FOLIC ACID [Concomitant]
     Dosage: UNK
  4. IRON [Concomitant]
     Dosage: UNK
  5. CLAVERSAL [Concomitant]
     Dosage: UNK
  6. INFLIXIMAB [Concomitant]
     Indication: COLITIS ULCERATIVE
     Route: 042
  7. URBASON                            /00049601/ [Concomitant]
  8. INSULIN [Concomitant]
     Indication: DIABETES MELLITUS
  9. NOLOTIL [Concomitant]
     Indication: PAIN

REACTIONS (7)
  - Colitis ulcerative [Recovering/Resolving]
  - Ileus paralytic [Recovering/Resolving]
  - Haemorrhage [Unknown]
  - Urinary tract infection [Not Recovered/Not Resolved]
  - Oral infection [Not Recovered/Not Resolved]
  - Pain [Not Recovered/Not Resolved]
  - Asthenia [Not Recovered/Not Resolved]
